FAERS Safety Report 15350151 (Version 1)
Quarter: 2018Q3

REPORT INFORMATION
  Report Type: Spontaneous
  Country: US (occurrence: US)
  Receive Date: 20180905
  Receipt Date: 20180905
  Transmission Date: 20181010
  Serious: No
  Sender: FDA-Public Use
  Company Number: US-ASTRAZENECA-2018SF01922

PATIENT
  Sex: Female
  Weight: 87.1 kg

DRUGS (4)
  1. VENTOLIN [Concomitant]
     Active Substance: ALBUTEROL SULFATE
     Indication: PULMONARY CONGESTION
     Dosage: FOUR PUFFS A DAY
     Route: 055
  2. SYMBICORT [Suspect]
     Active Substance: BUDESONIDE\FORMOTEROL FUMARATE DIHYDRATE
     Indication: ASTHMA
     Dosage: 160/4.5 UG, TWO PUFFS IN THE MORNING AND TWO PUFFS IN THE EVENING
     Route: 055
  3. DICLOFENAC [Concomitant]
     Active Substance: DICLOFENAC
  4. VENTOLIN [Concomitant]
     Active Substance: ALBUTEROL SULFATE
     Indication: PULMONARY CONGESTION
     Dosage: EIGHT PUFFS A DAY
     Route: 055

REACTIONS (11)
  - Asthma [Unknown]
  - Dysgeusia [Unknown]
  - Device defective [Unknown]
  - Memory impairment [Unknown]
  - Condition aggravated [Unknown]
  - Dyspnoea [Unknown]
  - Feeling abnormal [Unknown]
  - Drug dose omission [Unknown]
  - Chest discomfort [Unknown]
  - Intentional product misuse [Unknown]
  - Wrong technique in device usage process [Unknown]
